FAERS Safety Report 13051855 (Version 1)
Quarter: 2016Q4

REPORT INFORMATION
  Report Type: Spontaneous
  Country: FR (occurrence: FR)
  Receive Date: 20161221
  Receipt Date: 20161221
  Transmission Date: 20170207
  Serious: Yes (Death)
  Sender: FDA-Public Use
  Company Number: FR-TEVA-719926ROM

PATIENT

DRUGS (1)
  1. FUROSEMIDE TEVA 500 MG [Suspect]
     Active Substance: FUROSEMIDE

REACTIONS (1)
  - Death [Fatal]
